FAERS Safety Report 17375254 (Version 2)
Quarter: 2021Q1

REPORT INFORMATION
  Report Type: Report from Study
  Country: CA (occurrence: CA)
  Receive Date: 20200206
  Receipt Date: 20210106
  Transmission Date: 20210419
  Serious: Yes (Other)
  Sender: FDA-Public Use
  Company Number: CA-REGENERON PHARMACEUTICALS, INC.-2020-17537

PATIENT

DRUGS (1)
  1. EYLEA [Suspect]
     Active Substance: AFLIBERCEPT
     Indication: DIABETIC RETINAL OEDEMA
     Dosage: UNKNOWN TOTAL INJECTIONS RECEIVED
     Dates: start: 20200122

REACTIONS (2)
  - Retinal haemorrhage [Unknown]
  - Eye operation [Unknown]
